FAERS Safety Report 7164822-9 (Version None)
Quarter: 2010Q4

REPORT INFORMATION
  Report Type: 
  Country: None (occurrence: None)
  Receive Date: 20101215
  Receipt Date: 20101213
  Transmission Date: 20110411
  Serious: Yes (Life-Threatening)
  Sender: FDA-Public Use
  Company Number: GB-MERCK-1012GBR00054

PATIENT
  Age: 84 Year
  Sex: Female

DRUGS (4)
  1. FOSAMAX [Suspect]
     Indication: BONE DISORDER
     Route: 048
     Dates: end: 20101125
  2. FOSAMAX [Suspect]
     Indication: PROPHYLAXIS
     Route: 048
     Dates: end: 20101125
  3. ASPIRIN [Suspect]
     Route: 048
     Dates: end: 20101125
  4. ACETAMINOPHEN [Concomitant]
     Route: 048

REACTIONS (2)
  - GASTROINTESTINAL ULCER [None]
  - UPPER GASTROINTESTINAL HAEMORRHAGE [None]
